FAERS Safety Report 10174249 (Version 3)
Quarter: 2014Q4

REPORT INFORMATION
  Report Type: Spontaneous
  Country: US (occurrence: US)
  Receive Date: 20140515
  Receipt Date: 20141016
  Transmission Date: 20150528
  Serious: Yes (Hospitalization, Other)
  Sender: FDA-Public Use
  Company Number: US-BAYER-2014-071053

PATIENT
  Age: 29 Year
  Sex: Female
  Weight: 54 kg

DRUGS (1)
  1. MIRENA [Suspect]
     Active Substance: LEVONORGESTREL
     Indication: CONTRACEPTION
     Dosage: 20 MCG/24HR, CONT
     Route: 015
     Dates: start: 20130118, end: 20130801

REACTIONS (13)
  - Weight decreased [None]
  - Anxiety [Not Recovered/Not Resolved]
  - Injury [None]
  - Medical device discomfort [None]
  - Menorrhagia [None]
  - Genital haemorrhage [None]
  - Pain [None]
  - Medical device pain [None]
  - Headache [None]
  - Uterine enlargement [None]
  - Depression [Not Recovered/Not Resolved]
  - Embedded device [None]
  - Device issue [None]

NARRATIVE: CASE EVENT DATE: 2013
